FAERS Safety Report 15100440 (Version 3)
Quarter: 2018Q3

REPORT INFORMATION
  Report Type: Report from Study
  Country: None (occurrence: US)
  Receive Date: 20180703
  Receipt Date: 20180723
  Transmission Date: 20181010
  Serious: Yes (Other)
  Sender: FDA-Public Use
  Company Number: US-ABBVIE-18K-163-2406955-00

PATIENT
  Age: 30 Year
  Sex: Male
  Weight: 82.17 kg

DRUGS (2)
  1. HUMIRA [Suspect]
     Active Substance: ADALIMUMAB
     Indication: COLITIS ULCERATIVE
     Route: 058
     Dates: start: 20180630, end: 20180630
  2. HUMIRA [Suspect]
     Active Substance: ADALIMUMAB
     Dosage: 1 DOSE
     Route: 058
     Dates: start: 201807, end: 201807

REACTIONS (10)
  - Loss of consciousness [Recovered/Resolved]
  - Nervousness [Recovered/Resolved]
  - Nasopharyngitis [Recovered/Resolved]
  - Fear [Recovered/Resolved]
  - Cold sweat [Recovered/Resolved]
  - Anxiety [Recovered/Resolved]
  - Vomiting [Recovered/Resolved]
  - Loss of consciousness [Recovered/Resolved]
  - Pallor [Recovering/Resolving]
  - Asthenia [Recovering/Resolving]

NARRATIVE: CASE EVENT DATE: 20180630
